FAERS Safety Report 5770163-4 (Version None)
Quarter: 2008Q2

REPORT INFORMATION
  Report Type: 
  Country: None (occurrence: None)
  Receive Date: 20080613
  Receipt Date: 20080422
  Transmission Date: 20081010
  Serious: No
  Sender: FDA-Public Use
  Company Number: US-ABBOTT-08P-163-0448545-00

PATIENT
  Sex: Female
  Weight: 76.272 kg

DRUGS (9)
  1. HUMIRA [Suspect]
     Indication: CROHN'S DISEASE
     Dosage: LOADING DOSE
     Route: 058
     Dates: start: 20080418, end: 20080418
  2. HUMIRA [Suspect]
  3. PREDNISONE TAB [Concomitant]
     Indication: CROHN'S DISEASE
     Route: 048
  4. ESCITALOPRAM OXALATE [Concomitant]
     Indication: DEPRESSION
     Route: 048
  5. PANTOPRAZOLE [Concomitant]
     Indication: REFLUX GASTRITIS
     Route: 048
  6. TRAZODONE HCL [Concomitant]
     Indication: DEPRESSION
     Route: 048
  7. WARFARIN SODIUM [Concomitant]
     Indication: INFLAMMATORY BOWEL DISEASE
     Route: 048
  8. WARFARIN SODIUM [Concomitant]
     Indication: HYPERCOAGULATION
  9. NADOLOL [Concomitant]
     Indication: MIGRAINE
     Route: 048

REACTIONS (2)
  - DIARRHOEA [None]
  - VOMITING [None]
